FAERS Safety Report 9216892 (Version 6)
Quarter: 2013Q4

REPORT INFORMATION
  Report Type: Report from Study
  Country: JP (occurrence: JP)
  Receive Date: 20130408
  Receipt Date: 20131002
  Transmission Date: 20140711
  Serious: Yes (Death)
  Sender: FDA-Public Use
  Company Number: JP-PFIZER INC-2013106461

PATIENT
  Age: 81 Year
  Sex: Female
  Weight: 41.4 kg

DRUGS (13)
  1. XALKORI [Suspect]
     Indication: NON-SMALL CELL LUNG CANCER
     Dosage: 250 MG, 2X/DAY
     Dates: start: 20130220, end: 20130308
  2. DIOVAN ^NOVARTIS^ [Concomitant]
     Dosage: 80 MG, 1X/DAY
     Route: 048
     Dates: end: 20130407
  3. NORVASC [Concomitant]
     Dosage: 2.5 MG, 1X/DAY
     Route: 048
     Dates: end: 20130227
  4. MYSLEE [Concomitant]
     Dosage: 5 MG, AS NEEDED
     Route: 048
     Dates: end: 20130407
  5. RIZE [Concomitant]
     Dosage: 5 MG, 2X/DAY
     Route: 048
     Dates: end: 20130407
  6. NAIXAN [Concomitant]
     Dosage: 200 MG, 2X/DAY
     Route: 048
     Dates: start: 20130219, end: 20130407
  7. MAG-LAX [Concomitant]
     Dosage: 75 MG, 2X/DAY
     Route: 051
     Dates: start: 20130227, end: 20130407
  8. PROMAC /JPN/ [Concomitant]
     Dosage: 75 MG, 2X/DAY
     Route: 048
     Dates: start: 20130227, end: 20130407
  9. KETOPROFEN [Concomitant]
     Dosage: 20 MG, AS NEEDED
     Route: 061
     Dates: start: 20130223
  10. PRIMPERAN [Concomitant]
     Dosage: 5 MG, 3X/DAY
     Route: 048
     Dates: start: 20130306, end: 20130314
  11. DEPAS [Concomitant]
     Dosage: 0.5 MG, 2X/DAY
     Route: 048
     Dates: start: 20120308, end: 20130407
  12. AMLODIPINE [Concomitant]
     Dosage: 2.5 MG, 1X/DAY
     Route: 048
     Dates: start: 20130228, end: 20130407
  13. LOXOPROFEN SODIUM [Concomitant]
     Dosage: 60 MG, AS NEEDED
     Route: 048
     Dates: start: 20130417, end: 201304

REACTIONS (3)
  - Interstitial lung disease [Fatal]
  - Disease progression [Fatal]
  - Non-small cell lung cancer [Fatal]
